FAERS Safety Report 5398330-2 (Version None)
Quarter: 2007Q3

REPORT INFORMATION
  Report Type: 
  Country: None (occurrence: None)
  Receive Date: 20070724
  Receipt Date: 20070712
  Transmission Date: 20080115
  Serious: Yes (Hospitalization, Other)
  Sender: FDA-Public Use
  Company Number: 235205K07USA

PATIENT
  Age: 36 Year
  Sex: Female
  Weight: 113.8529 kg

DRUGS (8)
  1. REBIF [Suspect]
     Indication: MULTIPLE SCLEROSIS
     Dosage: 44 MCG, 3 IN 1 WEEKS, SUBCUTANEOUS
     Route: 058
     Dates: start: 20070119
  2. LANTUS [Concomitant]
  3. HUMALOG [Concomitant]
  4. BYETTA [Concomitant]
  5. GABAPENTIN [Concomitant]
  6. LIPITOR [Concomitant]
  7. NOVOLIN (INSULIN) [Concomitant]
  8. PROTONIX [Concomitant]

REACTIONS (8)
  - ABASIA [None]
  - ANAEMIA [None]
  - DIABETES MELLITUS INADEQUATE CONTROL [None]
  - DIABETIC NEPHROPATHY [None]
  - DIZZINESS [None]
  - FATIGUE [None]
  - GASTROENTERITIS [None]
  - LOSS OF CONSCIOUSNESS [None]
